FAERS Safety Report 6415100-4 (Version None)
Quarter: 2009Q4

REPORT INFORMATION
  Report Type: 
  Country: None (occurrence: None)
  Receive Date: 20091026
  Receipt Date: 20091016
  Transmission Date: 20100525
  Serious: Yes (Other)
  Sender: FDA-Public Use
  Company Number: US-PFIZER INC-2009287023

PATIENT
  Sex: Female
  Weight: 86.168 kg

DRUGS (3)
  1. LIPITOR [Suspect]
     Indication: BLOOD CHOLESTEROL INCREASED
     Dosage: 10 MG, 1X/DAY
     Route: 048
     Dates: start: 19900101
  2. HYDROCHLOROTHIAZIDE [Concomitant]
     Indication: HYPERTENSION
  3. AMLODIPINE/VALSARTAN [Concomitant]
     Indication: HYPERTENSION

REACTIONS (3)
  - BLOOD TRIGLYCERIDES INCREASED [None]
  - CAROTID ARTERY OCCLUSION [None]
  - DRUG INEFFECTIVE [None]
